FAERS Safety Report 14274461 (Version 1)
Quarter: 2017Q4

REPORT INFORMATION
  Report Type: Spontaneous
  Country: NL (occurrence: NL)
  Receive Date: 20171211
  Receipt Date: 20171211
  Transmission Date: 20180321
  Serious: Yes (Other)
  Sender: FDA-Public Use
  Company Number: NL-OTSUKA-DJ201407951

PATIENT
  Age: 25 Year
  Sex: Male

DRUGS (1)
  1. ABILIFY [Suspect]
     Active Substance: ARIPIPRAZOLE
     Indication: SCHIZOPHRENIA
     Dosage: CAPSULE
     Route: 048

REACTIONS (2)
  - Psychotic disorder [Recovered/Resolved]
  - Off label use [Unknown]
